FAERS Safety Report 23197370 (Version 1)
Quarter: 2023Q4

REPORT INFORMATION
  Report Type: Report from Study
  Country: SE (occurrence: SE)
  Receive Date: 20231117
  Receipt Date: 20231117
  Transmission Date: 20240109
  Serious: Yes (Hospitalization, Other)
  Sender: FDA-Public Use
  Company Number: SE-SUN PHARMACEUTICAL INDUSTRIES LTD-2023R1-418089

PATIENT
  Age: 76 Year
  Sex: Male

DRUGS (3)
  1. LENALIDOMIDE [Suspect]
     Active Substance: LENALIDOMIDE
     Indication: Immunosuppression
     Dosage: UNK UNK, DAILY
     Route: 065
  2. RITUXIMAB [Suspect]
     Active Substance: RITUXIMAB
     Indication: Immunosuppression
     Dosage: UNK, 1DOSE/MONTH
     Route: 065
  3. EPCORITAMAB [Suspect]
     Active Substance: EPCORITAMAB
     Indication: Immunosuppression
     Dosage: UNK, 1DOSE/MONTH
     Route: 065

REACTIONS (1)
  - COVID-19 [Recovered/Resolved]
